FAERS Safety Report 4954994-6 (Version None)
Quarter: 2006Q1

REPORT INFORMATION
  Report Type: 
  Country: None (occurrence: None)
  Receive Date: 20060322
  Receipt Date: 20060309
  Transmission Date: 20060701
  Serious: Yes (Other)
  Sender: FDA-Public Use
  Company Number: 2006034118

PATIENT
  Age: 31 Year
  Sex: Female
  Weight: 127.0072 kg

DRUGS (2)
  1. DEPO-PROVERA [Suspect]
     Indication: ENDOMETRIOSIS
     Dosage: SEE IMAGE
     Route: 030
     Dates: start: 20010314, end: 20010314
  2. DEPO-PROVERA [Suspect]
     Indication: ENDOMETRIOSIS
     Dosage: SEE IMAGE
     Route: 030
     Dates: start: 20060117, end: 20060117

REACTIONS (3)
  - AMENORRHOEA [None]
  - BLOOD PRESSURE INCREASED [None]
  - WEIGHT INCREASED [None]
